FAERS Safety Report 22083845 (Version 2)
Quarter: 2023Q1

REPORT INFORMATION
  Report Type: Spontaneous
  Country: US (occurrence: US)
  Receive Date: 20230310
  Receipt Date: 20230323
  Transmission Date: 20230417
  Serious: Yes (Other)
  Sender: FDA-Public Use
  Company Number: US-009507513-2303USA002991

PATIENT
  Age: 85 Year
  Sex: Male

DRUGS (1)
  1. TICE BCG [Suspect]
     Active Substance: BACILLUS CALMETTE-GUERIN SUBSTRAIN TICE LIVE ANTIGEN
     Indication: Bladder cancer
     Dosage: UNK

REACTIONS (5)
  - Skin cancer [Recovered/Resolved]
  - Radiotherapy [Unknown]
  - Atrial fibrillation [Unknown]
  - Drug ineffective [Unknown]
  - Anaemia [Unknown]
